FAERS Safety Report 5942365-5 (Version None)
Quarter: 2008Q4

REPORT INFORMATION
  Report Type: 
  Country: None (occurrence: None)
  Receive Date: 20081103
  Receipt Date: 20081022
  Transmission Date: 20090506
  Serious: Yes (Hospitalization)
  Sender: FDA-Public Use
  Company Number: GXKR2008GB10104

PATIENT
  Age: 69 Year
  Sex: Male
  Weight: 70 kg

DRUGS (6)
  1. FUROSEMIDE+AMILORIDE (NGX) (AMILORIDE, FURO SEMIDE) [Suspect]
     Indication: POLYURIA
     Dates: start: 20080201
  2. PERINDOPRIL (NGX) (PERINDOPRIL) [Suspect]
     Indication: CARDIAC DISORDER
     Dosage: 2 MG, QD
     Dates: start: 20080201
  3. ACETYLSALICYLIC ACID SRT [Concomitant]
  4. BISOPROLOL FUMARATE [Concomitant]
  5. CLOPIDOGREL [Concomitant]
  6. OMEPRAZOLE [Concomitant]

REACTIONS (5)
  - BLOOD CREATININE ABNORMAL [None]
  - BLOOD POTASSIUM ABNORMAL [None]
  - BLOOD UREA ABNORMAL [None]
  - HAEMOGLOBIN ABNORMAL [None]
  - HYPOTENSION [None]
